FAERS Safety Report 23876199 (Version 1)
Quarter: 2024Q2

REPORT INFORMATION
  Report Type: Spontaneous
  Country: US (occurrence: US)
  Receive Date: 20240520
  Receipt Date: 20240520
  Transmission Date: 20240716
  Serious: No
  Sender: FDA-Public Use
  Company Number: US-BEH-2024171947

PATIENT
  Age: 60 Year
  Sex: Male

DRUGS (1)
  1. PRIVIGEN [Suspect]
     Active Substance: HUMAN IMMUNOGLOBULIN G
     Indication: Guillain-Barre syndrome
     Dosage: 190 G, QMT
     Route: 042
     Dates: start: 201611

REACTIONS (3)
  - Mobility decreased [Unknown]
  - Hypoaesthesia [Unknown]
  - Insurance issue [Unknown]

NARRATIVE: CASE EVENT DATE: 20240301
